FAERS Safety Report 5390993-0 (Version None)
Quarter: 2007Q3

REPORT INFORMATION
  Report Type: 
  Country: None (occurrence: None)
  Receive Date: 20070716
  Receipt Date: 20060123
  Transmission Date: 20080115
  Serious: Yes (Other)
  Sender: FDA-Public Use
  Company Number: MPS1-10494

PATIENT
  Age: 4 Year
  Sex: Female
  Weight: 16 kg

DRUGS (6)
  1. ALDURAZYME [Suspect]
     Indication: MUCOPOLYSACCHARIDOSIS I
     Dosage: 0.58 MG/KG QWK IV
     Route: 042
     Dates: start: 20030801
  2. BACTRIM [Concomitant]
  3. PULMICORT [Concomitant]
  4. ZYRTEC [Concomitant]
  5. FLONASE [Concomitant]
  6. ALBUTEROL [Concomitant]

REACTIONS (7)
  - BRAIN STEM GLIOMA [None]
  - DEAFNESS [None]
  - HEAD INJURY [None]
  - HYPERSENSITIVITY [None]
  - PYREXIA [None]
  - SWELLING [None]
  - UMBILICAL HERNIA [None]
